FAERS Safety Report 5918802-9 (Version None)
Quarter: 2008Q4

REPORT INFORMATION
  Report Type: 
  Country: None (occurrence: None)
  Receive Date: 20081015
  Receipt Date: 20080923
  Transmission Date: 20090506
  Serious: Yes (Other)
  Sender: FDA-Public Use
  Company Number: US-BAYER-US-2007-029377

PATIENT
  Age: 46 Year
  Sex: Male

DRUGS (2)
  1. MAGNEVIST [Suspect]
     Indication: NUCLEAR MAGNETIC RESONANCE IMAGING
     Dosage: AS USED: 20 ML
     Route: 042
     Dates: start: 20030513, end: 20030513
  2. MAGNEVIST [Suspect]
     Dosage: AS USED: 20 ML
     Route: 040
     Dates: start: 20021220, end: 20021220

REACTIONS (1)
  - NEPHROGENIC SYSTEMIC FIBROSIS [None]
